FAERS Safety Report 8541763 (Version 4)
Quarter: 2012Q4

REPORT INFORMATION
  Report Type: 
  Country: US (occurrence: US)
  Receive Date: 20120502
  Receipt Date: 20120828
  Transmission Date: 20130627
  Serious: Yes (Other)
  Sender: FDA-Public Use
  Company Number: US-PFIZER INC-2012106390

PATIENT
  Age: 70 Year
  Sex: Male
  Weight: 100 kg

DRUGS (6)
  1. NICOTROL [Suspect]
     Indication: SMOKING CESSATION THERAPY
     Dosage: UNK
  2. NICOTROL [Suspect]
     Dosage: 3 to 4 packages per day
     Dates: start: 20120803
  3. CHANTIX [Suspect]
     Indication: SMOKING CESSATION THERAPY
     Dosage: UNK
  4. ZYPREXA [Concomitant]
     Dosage: 5 mg, daily
  5. LISINOPRIL [Concomitant]
     Indication: HYPERTENSION
     Dosage: 5 mg, daily
  6. PROAIR HFA [Concomitant]
     Indication: CHRONIC OBSTRUCTIVE PULMONARY DISEASE
     Dosage: UNK

REACTIONS (8)
  - Suicidal ideation [Unknown]
  - Self-injurious ideation [Unknown]
  - Homicidal ideation [Unknown]
  - Aggression [Unknown]
  - Withdrawal syndrome [Not Recovered/Not Resolved]
  - Malaise [Unknown]
  - Drug ineffective [Unknown]
  - Pruritus [Not Recovered/Not Resolved]
